FAERS Safety Report 9419680 (Version 2)
Quarter: 2013Q3

REPORT INFORMATION
  Report Type: Spontaneous
  Country: DE (occurrence: None)
  Receive Date: 20130723
  Receipt Date: 20130808
  Transmission Date: 20140515
  Serious: Yes (Death, Other)
  Sender: FDA-Public Use
  Company Number: USA/GER/13/0032428

PATIENT
  Age: 78 Year
  Sex: Female

DRUGS (5)
  1. METFORMIN (METFORMIN) [Suspect]
     Indication: TYPE 2 DIABETES MELLITUS
  2. VERAPAMIL (VERAPAMIL) [Concomitant]
  3. PANTOPRAZOLE (PANTOPRAZOLE) [Concomitant]
  4. ISOSORBIDE [Concomitant]
  5. RAMIPRIL (RAMIPRIL) [Concomitant]

REACTIONS (21)
  - Circulatory collapse [None]
  - Diarrhoea [None]
  - Nausea [None]
  - Asthenia [None]
  - Abdominal pain upper [None]
  - Dyspnoea [None]
  - Somnolence [None]
  - Tachypnoea [None]
  - Oliguria [None]
  - Hypocapnia [None]
  - Hypoxia [None]
  - Arrhythmia [None]
  - Atrial fibrillation [None]
  - Haematuria [None]
  - Hyperkalaemia [None]
  - Hyponatraemia [None]
  - Lactic acidosis [None]
  - Intestinal ischaemia [None]
  - Loss of consciousness [None]
  - Metabolic acidosis [None]
  - Overdose [None]
